FAERS Safety Report 15806211 (Version 3)
Quarter: 2019Q4

REPORT INFORMATION
  Report Type: Spontaneous
  Country: US (occurrence: US)
  Receive Date: 20190110
  Receipt Date: 20191205
  Transmission Date: 20200122
  Serious: No
  Sender: FDA-Public Use
  Company Number: US-PFIZER INC-2019012024

PATIENT
  Age: 15 Year
  Sex: Male
  Weight: 28.57 kg

DRUGS (2)
  1. GENOTROPIN [Suspect]
     Active Substance: SOMATROPIN
     Indication: GROWTH HORMONE DEFICIENCY
     Dosage: 1.8 MG, CYCLIC (SIX DAYS PER WEEK)
     Route: 058
     Dates: start: 201812
  2. GENOTROPIN [Suspect]
     Active Substance: SOMATROPIN
     Dosage: 2.4 MG, CYCLIC (6 DAYS A WEEK)
     Route: 058

REACTIONS (1)
  - Headache [Unknown]
